FAERS Safety Report 19289300 (Version 1)
Quarter: 2021Q2

REPORT INFORMATION
  Report Type: Spontaneous
  Country: US (occurrence: US)
  Receive Date: 20210521
  Receipt Date: 20210521
  Transmission Date: 20210717
  Serious: No
  Sender: FDA-Public Use
  Company Number: US-PFIZER INC-2021473549

PATIENT
  Age: 56 Year
  Sex: Female
  Weight: 117.93 kg

DRUGS (2)
  1. LYRICA [Suspect]
     Active Substance: PREGABALIN
     Indication: HYSTERECTOMY
     Dosage: 75 MG, 1X/DAY BEDTIME
  2. LYRICA [Suspect]
     Active Substance: PREGABALIN
     Indication: FIBROMYALGIA
     Dosage: UNK
     Dates: start: 2006

REACTIONS (2)
  - Dizziness [Unknown]
  - Vision blurred [Unknown]
